FAERS Safety Report 22995878 (Version 2)
Quarter: 2023Q4

REPORT INFORMATION
  Report Type: Other
  Country: SK (occurrence: SK)
  Receive Date: 20230927
  Receipt Date: 20231012
  Transmission Date: 20240110
  Serious: Yes (Hospitalization)
  Sender: FDA-Public Use
  Company Number: SK-PFIZER INC-PV202300155111

PATIENT
  Age: 32 Year
  Sex: Female

DRUGS (2)
  1. RITUXIMAB [Suspect]
     Active Substance: RITUXIMAB
     Indication: Epilepsy
     Dosage: CONCENTRATE FOR SOLUTION FOR INFUSION
     Route: 065
  2. RITUXIMAB [Suspect]
     Active Substance: RITUXIMAB
     Indication: Autoimmune encephalopathy

REACTIONS (2)
  - Off label use [Unknown]
  - Cognitive disorder [Unknown]
